FAERS Safety Report 23474287 (Version 1)
Quarter: 2024Q1

REPORT INFORMATION
  Report Type: Spontaneous
  Country: JP (occurrence: JP)
  Receive Date: 20240204
  Receipt Date: 20240204
  Transmission Date: 20240410
  Serious: Yes (Other)
  Sender: FDA-Public Use
  Company Number: JP-TAKEDA-2023TJP001157

PATIENT
  Age: 8 Decade
  Sex: Male

DRUGS (3)
  1. CABOMETYX [Suspect]
     Active Substance: CABOZANTINIB S-MALATE
     Indication: Renal cancer
     Dosage: 40 MG, QD
     Route: 048
     Dates: start: 20221220
  2. PEMBROLIZUMAB [Suspect]
     Active Substance: PEMBROLIZUMAB
     Indication: Renal cancer
     Dosage: UNK
     Route: 065
  3. AXITINIB [Suspect]
     Active Substance: AXITINIB
     Indication: Renal cancer
     Dosage: UNK
     Route: 065

REACTIONS (1)
  - Hypothyroidism [Recovered/Resolved]

NARRATIVE: CASE EVENT DATE: 20230110
